FAERS Safety Report 5829361-3 (Version None)
Quarter: 2008Q2

REPORT INFORMATION
  Report Type: 
  Country: None (occurrence: None)
  Receive Date: 20080601
  Receipt Date: 20080220
  Transmission Date: 20081010
  Serious: No
  Sender: FDA-Public Use
  Company Number: US200802005036

PATIENT
  Age: 54 Year
  Sex: Female
  Weight: 129.7 kg

DRUGS (2)
  1. BYETTA [Suspect]
     Indication: TYPE 2 DIABETES MELLITUS
     Dates: start: 20080101, end: 20080214
  2. METFORMIN HCL [Concomitant]

REACTIONS (5)
  - ABDOMINAL PAIN UPPER [None]
  - DECREASED APPETITE [None]
  - HYPERHIDROSIS [None]
  - PAIN [None]
  - WEIGHT DECREASED [None]
